FAERS Safety Report 18661376 (Version 5)
Quarter: 2021Q3

REPORT INFORMATION
  Report Type: Report from Study
  Country: JP (occurrence: JP)
  Receive Date: 20201224
  Receipt Date: 20210928
  Transmission Date: 20211014
  Serious: Yes (Hospitalization, Other)
  Sender: FDA-Public Use
  Company Number: JP-ALNYLAM PHARMACEUTICALS, INC.-ALN-2020-002416

PATIENT

DRUGS (19)
  1. ONPATTRO [Suspect]
     Active Substance: PATISIRAN SODIUM
     Dosage: 11.73 MILLIGRAM
     Route: 041
     Dates: start: 20200527, end: 20200527
  2. ONPATTRO [Suspect]
     Active Substance: PATISIRAN SODIUM
     Dosage: 12.63 MILLIGRAM
     Route: 041
     Dates: start: 20200108, end: 20200108
  3. NORMAL SALINE [Suspect]
     Active Substance: SODIUM CHLORIDE
     Indication: PRODUCT USED FOR UNKNOWN INDICATION
     Dosage: 500 MILLILITER
     Route: 042
     Dates: start: 20191217, end: 20201128
  4. ALDACTONE [Concomitant]
     Active Substance: SPIRONOLACTONE
     Indication: HEREDITARY NEUROPATHIC AMYLOIDOSIS
  5. ONPATTRO [Suspect]
     Active Substance: PATISIRAN SODIUM
     Dosage: 11.73 MILLIGRAM
     Route: 041
     Dates: start: 20200311, end: 20200408
  6. DECADRON [Suspect]
     Active Substance: DEXAMETHASONE
     Indication: PROPHYLAXIS
     Dosage: 9.9 MILLIGRAM, SINGLE
     Route: 042
     Dates: start: 20191217
  7. LASIX [Concomitant]
     Active Substance: FUROSEMIDE
     Indication: HEREDITARY NEUROPATHIC AMYLOIDOSIS
  8. SAMSCA [Concomitant]
     Active Substance: TOLVAPTAN
     Indication: CARDIAC FAILURE CHRONIC
     Dosage: 3.75 MILLIGRAM, QD
     Route: 065
     Dates: end: 20200108
  9. PANVITAN [Concomitant]
     Active Substance: VITAMINS
     Indication: PROPHYLAXIS
     Dosage: 1 GRAM, QD
     Route: 048
     Dates: start: 20191218
  10. ONPATTRO [Suspect]
     Active Substance: PATISIRAN SODIUM
     Dosage: 12.39 MILLIGRAM
     Route: 041
     Dates: start: 20200129, end: 20200219
  11. ALDACTONE [Concomitant]
     Active Substance: SPIRONOLACTONE
     Indication: CARDIAC FAILURE CHRONIC
     Dosage: 12.5 MILLIGRAM, QD
     Route: 065
  12. ONPATTRO [Suspect]
     Active Substance: PATISIRAN SODIUM
     Dosage: 11.76 MILLIGRAM
     Route: 041
     Dates: start: 20200501, end: 20200501
  13. NEORESTAR [Concomitant]
     Active Substance: CHLORPHENIRAMINE MALEATE
     Indication: PROPHYLAXIS
     Dosage: 10 MILLIGRAM, SINGLE
     Route: 065
     Dates: start: 20191217
  14. LASIX [Concomitant]
     Active Substance: FUROSEMIDE
     Indication: CARDIAC FAILURE CHRONIC
     Dosage: 40 MILLIGRAM, BID
     Route: 065
  15. SAMSCA [Concomitant]
     Active Substance: TOLVAPTAN
     Indication: HEREDITARY NEUROPATHIC AMYLOIDOSIS
     Dosage: 7.5 MILLIGRAM, QD
     Route: 065
     Dates: start: 20200108
  16. ONPATTRO [Suspect]
     Active Substance: PATISIRAN SODIUM
     Indication: HEREDITARY NEUROPATHIC AMYLOIDOSIS
     Dosage: 12.9 MILLIGRAM
     Route: 041
     Dates: start: 20191217, end: 20191217
  17. ONPATTRO [Suspect]
     Active Substance: PATISIRAN SODIUM
     Dosage: 7.65 MILLILITER
     Route: 041
     Dates: start: 20201128, end: 20201128
  18. CALONAL [Concomitant]
     Active Substance: ACETAMINOPHEN
     Indication: PROPHYLAXIS
     Dosage: 500 MILLIGRAM, SINGLE
     Route: 065
     Dates: start: 20191217
  19. GASTER [Concomitant]
     Active Substance: FAMOTIDINE
     Indication: PROPHYLAXIS
     Dosage: 20 MILLIGRAM, SINGLE
     Route: 065
     Dates: start: 20191217

REACTIONS (1)
  - Cardiac failure [Not Recovered/Not Resolved]

NARRATIVE: CASE EVENT DATE: 20201130
